FAERS Safety Report 5537589-5 (Version None)
Quarter: 2007Q4

REPORT INFORMATION
  Report Type: 
  Country: None (occurrence: None)
  Receive Date: 20071207
  Receipt Date: 20071127
  Transmission Date: 20080405
  Serious: Yes (Hospitalization, Other)
  Sender: FDA-Public Use
  Company Number: US-AMGEN-STX254364

PATIENT
  Sex: Male

DRUGS (1)
  1. ENBREL [Suspect]
     Indication: PSORIASIS
     Route: 058
     Dates: start: 20060601

REACTIONS (9)
  - CARDIAC DISORDER [None]
  - CARDIOMEGALY [None]
  - COLD SWEAT [None]
  - DYSPHONIA [None]
  - DYSPNOEA [None]
  - MALAISE [None]
  - RENAL DISORDER [None]
  - WEIGHT INCREASED [None]
  - WHEEZING [None]
